FAERS Safety Report 8762507 (Version 1)
Quarter: 2012Q4

REPORT INFORMATION
  Report Type: 
  Country: US (occurrence: US)
  Receive Date: 20120829
  Receipt Date: 20120829
  Transmission Date: 20130627
  Serious: Yes (Other)
  Sender: FDA-Public Use
  Company Number: US-PFIZER INC-2012208807

PATIENT
  Age: 46 Year
  Sex: Female
  Weight: 54.88 kg

DRUGS (8)
  1. LYRICA [Suspect]
     Indication: DIABETIC NEUROPATHY
     Dosage: 150 mg, 3x/day
  2. NOVOLOG [Concomitant]
     Indication: DIABETES MELLITUS
     Dosage: UNK, as needed
  3. LANTUS [Concomitant]
     Indication: DIABETES MELLITUS
     Dosage: 55 IU, daily
  4. COREG [Concomitant]
     Indication: HYPERTENSION
     Dosage: 25 mg, 3x/day
  5. LORTAB [Concomitant]
     Indication: BACK PAIN
     Dosage: 10/500 mg,as needed
  6. LORTAB [Concomitant]
     Indication: MUSCULOSKELETAL PAIN
  7. FLEXERIL [Concomitant]
     Indication: BACK PAIN
     Dosage: 10 mg, 3x/day
  8. FLEXERIL [Concomitant]
     Indication: MUSCULOSKELETAL PAIN

REACTIONS (1)
  - Depression [Unknown]
